FAERS Safety Report 25297250 (Version 1)
Quarter: 2025Q2

REPORT INFORMATION
  Report Type: Spontaneous
  Country: US (occurrence: US)
  Receive Date: 20250511
  Receipt Date: 20250511
  Transmission Date: 20250717
  Serious: No
  Sender: UCB
  Company Number: US-UCBSA-2024032793

PATIENT
  Age: 55 Year
  Sex: Female
  Weight: 67.574 kg

DRUGS (1)
  1. CIMZIA [Suspect]
     Active Substance: CERTOLIZUMAB PEGOL
     Indication: Ankylosing spondylitis
     Dosage: 400 MILLIGRAM, EV 4 WEEKS
     Route: 058
     Dates: start: 202406

REACTIONS (8)
  - Feeling abnormal [Unknown]
  - Arthralgia [Unknown]
  - Fatigue [Unknown]
  - Chest pain [Unknown]
  - Throat irritation [Unknown]
  - Influenza [Unknown]
  - Tooth extraction [Unknown]
  - Intentional dose omission [Unknown]

NARRATIVE: CASE EVENT DATE: 20240601
